FAERS Safety Report 24111745 (Version 1)
Quarter: 2024Q3

REPORT INFORMATION
  Report Type: Spontaneous
  Country: US (occurrence: US)
  Receive Date: 20240718
  Receipt Date: 20240718
  Transmission Date: 20241016
  Serious: No
  Sender: MERCK
  Company Number: US-009507513-2406USA009598

PATIENT
  Age: 63 Year
  Sex: Female

DRUGS (2)
  1. TEMODAR [Suspect]
     Active Substance: TEMOZOLOMIDE
     Indication: Glioblastoma
     Dosage: 75 MILLIGRAM/SQ. METER
     Route: 048
  2. DEXAMETHASONE [Concomitant]
     Active Substance: DEXAMETHASONE
     Dosage: 4 MILLIGRAM, BID

REACTIONS (1)
  - Drug ineffective [Unknown]
